FAERS Safety Report 18649931 (Version 3)
Quarter: 2021Q2

REPORT INFORMATION
  Report Type: Spontaneous
  Country: ES (occurrence: ES)
  Receive Date: 20201222
  Receipt Date: 20210427
  Transmission Date: 20210717
  Serious: Yes (Life-Threatening, Hospitalization, Other)
  Sender: FDA-Public Use
  Company Number: ES-PFIZER INC-2020496102

PATIENT
  Age: 67 Year
  Sex: Male

DRUGS (8)
  1. GRANULOCYTE COLONY STIMULATING FACTOR [Concomitant]
     Active Substance: GRANULOCYTE COLONY-STIMULATING FACTOR NOS
     Indication: BLAST CRISIS IN MYELOGENOUS LEUKAEMIA
  2. DASATINIB. [Suspect]
     Active Substance: DASATINIB
     Indication: BLAST CRISIS IN MYELOGENOUS LEUKAEMIA
     Dosage: 100 MG, FREQ:2 {CYCLICAL};INITIALLY
  3. DASATINIB. [Suspect]
     Active Substance: DASATINIB
     Dosage: 140 MG, CYCLIC (140 MG THEREAFTER TEMPORARY WITHDRAWAL OF DASATINIB WITH SUBSEQUENT DOSE ESCALATION
  4. IDARUBICIN HCL [Suspect]
     Active Substance: IDARUBICIN HYDROCHLORIDE
     Indication: BLAST CRISIS IN MYELOGENOUS LEUKAEMIA
     Dosage: 10 MG/M2, CYCLIC (10 MG/M2, FREQ:2 {CYCLICAL};DAYS 1 TO 3)
     Route: 042
  5. HYDREA [Concomitant]
     Active Substance: HYDROXYUREA
     Indication: BLAST CRISIS IN MYELOGENOUS LEUKAEMIA
     Dosage: UNK UNK, CYCLE
  6. FLUDARABINE [Suspect]
     Active Substance: FLUDARABINE PHOSPHATE
     Indication: BLAST CRISIS IN MYELOGENOUS LEUKAEMIA
     Dosage: 30 MG/M2, FREQ:2 {CYCLICAL};DAY 1 TO 4
     Route: 042
  7. CYTARABINE. [Suspect]
     Active Substance: CYTARABINE
     Indication: BLAST CRISIS IN MYELOGENOUS LEUKAEMIA
     Dosage: UNK, CYCLIC(2 G/M2, CYCLIC (DAYS 1 TO 4)
     Route: 042
  8. GRANULOCYTE COLONY STIMULATING FACTOR [Concomitant]
     Active Substance: GRANULOCYTE COLONY-STIMULATING FACTOR NOS
     Indication: PROPHYLAXIS
     Dosage: 300 UG/M2, ON DAYS 1?5
     Route: 058

REACTIONS (7)
  - Cytomegalovirus infection [Recovered/Resolved]
  - Bronchopulmonary aspergillosis [Unknown]
  - Thrombocytopenia [Unknown]
  - Cytomegalovirus infection reactivation [Recovering/Resolving]
  - Staphylococcal infection [Unknown]
  - Product use in unapproved indication [Unknown]
  - Neutropenia [Recovered/Resolved]
